FAERS Safety Report 4570732-3 (Version None)
Quarter: 2005Q1

REPORT INFORMATION
  Report Type: 
  Country: None (occurrence: None)
  Receive Date: 20050202
  Receipt Date: 20050126
  Transmission Date: 20050727
  Serious: Yes (Death)
  Sender: FDA-Public Use
  Company Number: TCI2005A00222

PATIENT
  Age: 74 Year
  Sex: Male

DRUGS (34)
  1. PIOGLITAZONE HYDROCHLORIDE (PIOGLITAZONE HYDROCHLORIDE) [Suspect]
     Indication: DIABETES MELLITUS NON-INSULIN-DEPENDENT
     Dosage: SEE I MAGE
     Route: 048
     Dates: start: 20020809, end: 20030612
  2. PIOGLITAZONE HYDROCHLORIDE (PIOGLITAZONE HYDROCHLORIDE) [Suspect]
     Indication: DIABETES MELLITUS NON-INSULIN-DEPENDENT
     Dosage: SEE I MAGE
     Route: 048
     Dates: start: 20030613, end: 20050120
  3. CERCINE INJECTION (DIAZEPAM) [Concomitant]
  4. DASEN TABLETS (SERRAPEPTASE) [Concomitant]
  5. FIRSTCIN (CEFOZOPRAN HYDROCHLORIDE) [Concomitant]
  6. VISCOAT (HYALURONATE SODIUM) [Concomitant]
  7. PAMILCON (GLIBENCLAMIDE) [Concomitant]
  8. ASPIRIN [Concomitant]
  9. DIOVAN [Concomitant]
  10. DIART (AZOSEMIDE) [Concomitant]
  11. PICLONADINE (TICLOPIDINE HYDROCHLORIDE) [Concomitant]
  12. DECADRON [Concomitant]
  13. ADONA{AC-17} (CARBAZOCHROME SODIUM SULFONATE) [Concomitant]
  14. ALLORIN (ALLOPURINOL) [Concomitant]
  15. BUFORMIN HYDROCHLORIDE (BUFORMIN HYDROCHLORIDE) [Concomitant]
  16. RABEPRAZOLE SODIUM [Concomitant]
  17. GASCON (DIMETICONE) [Concomitant]
  18. XYLOCAINE JELLY (LIDOCAINE HYDROCHLORIDE) [Concomitant]
  19. XYLOCAINE SPRAY (LIDOCAINE HYDROCHLORIDE) [Concomitant]
  20. SESDEN (TIMEPIDIUM BROMIDE) [Concomitant]
  21. DEXTROSE [Concomitant]
  22. FAMOTIDINE [Concomitant]
  23. XYLOCAINE [Concomitant]
  24. XYLOCAINE WITH EPINEPHRINE (XYLOCAINE-EPINEPHRINE) [Concomitant]
  25. BALANCED SALT SOLUTION (BSS) [Concomitant]
  26. OPEGAN (HYALURONATE SODIUM) [Concomitant]
  27. HEALON (HYALURONATE SODIUM) [Concomitant]
  28. TARIVID OPTHALMIC OINTMENT (OFLOXACIN) [Concomitant]
  29. CEFZON (CEFDINIR) [Concomitant]
  30. SEISHOKU (SODIUM CHLORIDE) [Concomitant]
  31. LEVOFLOXACIN [Concomitant]
  32. RINDERON A (BETNESOL-N) [Concomitant]
  33. BRONUCK (BROMFENAC SODIUM) [Concomitant]
  34. BEZAFIBRATE (BEZAFIBRATE) [Concomitant]

REACTIONS (4)
  - CEREBRAL INFARCTION [None]
  - DIZZINESS [None]
  - DROWNING [None]
  - FALL [None]
